FAERS Safety Report 5898875-2 (Version None)
Quarter: 2008Q3

REPORT INFORMATION
  Report Type: 
  Country: None (occurrence: None)
  Receive Date: 20080925
  Receipt Date: 20080915
  Transmission Date: 20090109
  Serious: Yes (Other)
  Sender: FDA-Public Use
  Company Number: DE-JNJFOC-20080904624

PATIENT
  Age: 66 Year
  Sex: Male

DRUGS (1)
  1. TRAMADOL HCL [Suspect]
     Indication: TUMOUR EXCISION
     Dosage: RECEIVED AN ^ESTABLISHED^ DOSE

REACTIONS (2)
  - RESPIRATORY DEPRESSION [None]
  - THERAPEUTIC AGENT TOXICITY [None]
